FAERS Safety Report 4955249-6 (Version None)
Quarter: 2006Q1

REPORT INFORMATION
  Report Type: 
  Country: None (occurrence: None)
  Receive Date: 20060328
  Receipt Date: 20060321
  Transmission Date: 20060701
  Serious: Yes (Hospitalization)
  Sender: FDA-Public Use
  Company Number: 2006UW04857

PATIENT
  Age: 76 Year
  Sex: Female

DRUGS (2)
  1. ARIMIDEX [Suspect]
     Route: 048
     Dates: start: 20041117
  2. HYDROCHLOROTHIAZIDE [Concomitant]
     Route: 048

REACTIONS (7)
  - BALANCE DISORDER [None]
  - BLOOD PRESSURE INCREASED [None]
  - FALL [None]
  - GAIT DISTURBANCE [None]
  - HUMERUS FRACTURE [None]
  - HYPOAESTHESIA [None]
  - NAUSEA [None]
